FAERS Safety Report 4665424-6 (Version None)
Quarter: 2005Q2

REPORT INFORMATION
  Report Type: 
  Country: None (occurrence: None)
  Receive Date: 20050518
  Receipt Date: 20050518
  Transmission Date: 20051028
  Serious: Yes (Hospitalization)
  Sender: FDA-Public Use
  Company Number: None

PATIENT
  Sex: Female

DRUGS (14)
  1. CONJUGATED ESTROGEN 0.3MG [Suspect]
     Indication: ARTIFICIAL MENOPAUSE
     Dosage: 0.3MG  DAILY ORAL
     Route: 048
  2. LORATADINE [Concomitant]
  3. MONTELUKAST [Concomitant]
  4. OMEPRAZOLE [Concomitant]
  5. FLUTICASONE/SALMETEROL [Concomitant]
  6. HYDROCHLOROTHIAZIDE [Concomitant]
  7. SIMVASTATIN [Concomitant]
  8. NAPROXEN [Concomitant]
  9. LORAZEPAM [Concomitant]
  10. TRAMADOL [Concomitant]
  11. TRAZODONE [Concomitant]
  12. VALSARTAN [Concomitant]
  13. CYCLOBENZAPRINE HCL [Concomitant]
  14. ALBUTEROL [Concomitant]

REACTIONS (1)
  - DEEP VEIN THROMBOSIS [None]
